FAERS Safety Report 4767651-6 (Version None)
Quarter: 2005Q3

REPORT INFORMATION
  Report Type: 
  Country: None (occurrence: None)
  Receive Date: 20050912
  Receipt Date: 20050902
  Transmission Date: 20060218
  Serious: Yes (Hospitalization, Other)
  Sender: FDA-Public Use
  Company Number: 2005124054

PATIENT
  Sex: Female

DRUGS (3)
  1. NEURONTIN [Suspect]
     Indication: NEUROPATHY PERIPHERAL
     Dosage: 900 MG (300 MG, 3 IN 1 D), ORAL
     Route: 048
     Dates: start: 20010301
  2. VITAMINS (VITAMINS) [Concomitant]
  3. DALMANE (FLURAZEPAM HYDROHCLORIDE) [Concomitant]

REACTIONS (6)
  - ABDOMINAL PAIN [None]
  - BODY HEIGHT DECREASED [None]
  - DIVERTICULITIS [None]
  - HYPOTENSION [None]
  - PAIN IN EXTREMITY [None]
  - VOMITING [None]
